FAERS Safety Report 8067738-9 (Version None)
Quarter: 2012Q1

REPORT INFORMATION
  Report Type: 
  Country: None (occurrence: None)
  Receive Date: 20120124
  Receipt Date: 20120113
  Transmission Date: 20120608
  Serious: Yes (Hospitalization)
  Sender: FDA-Public Use
  Company Number: IE-MEDIMMUNE-MEDI-0014245

PATIENT
  Sex: Male

DRUGS (6)
  1. SYNAGIS [Suspect]
     Route: 030
     Dates: start: 20111014, end: 20111014
  2. NG FEEDS [Concomitant]
  3. RANITIDINE [Concomitant]
  4. PHENOBARBITAL TAB [Concomitant]
  5. HYOSCINE [Concomitant]
     Route: 062
  6. PHENYTOIN [Concomitant]

REACTIONS (2)
  - BRONCHIOLITIS [None]
  - LOWER RESPIRATORY TRACT INFECTION [None]
